FAERS Safety Report 10086381 (Version 1)
Quarter: 2014Q2

REPORT INFORMATION
  Report Type: Spontaneous
  Country: FR (occurrence: FR)
  Receive Date: 20140418
  Receipt Date: 20140418
  Transmission Date: 20141212
  Serious: Yes (Hospitalization)
  Sender: FDA-Public Use
  Company Number: FR-PFIZER INC-2014107413

PATIENT
  Age: 83 Year
  Sex: Male

DRUGS (14)
  1. XANAX [Suspect]
     Dosage: 1.5 MG, 1X/DAY
     Route: 048
     Dates: start: 20140109
  2. DUROGESIC [Suspect]
     Indication: PAIN
     Dosage: 4 UG (12 UG ONCE EVERY 72 HOURS)
     Route: 062
     Dates: start: 20140109
  3. ACTISKENAN [Suspect]
     Indication: PAIN
     Dosage: 5 MG, UNK
     Route: 048
     Dates: start: 20140109, end: 20140113
  4. SKENAN [Suspect]
     Indication: PAIN
     Dosage: 10 MG, UNK
     Route: 048
     Dates: start: 20140113, end: 20140114
  5. MORPHINE [Suspect]
     Indication: PAIN
     Dosage: UNK
     Route: 042
     Dates: start: 20140114
  6. SPECIAFOLDINE [Suspect]
     Dosage: 10 MG, 1X/DAY
     Route: 048
     Dates: start: 20140109
  7. TARDYFERON [Suspect]
     Dosage: 80 MG, 1X/DAY
     Route: 048
     Dates: start: 20140109
  8. PARACETAMOL [Concomitant]
     Dosage: UNK
  9. PERINDOPRIL [Concomitant]
     Dosage: UNK
  10. ZOPICLONE [Concomitant]
     Dosage: UNK
  11. KARDEGIC [Concomitant]
     Dosage: UNK
  12. FRAGMIN [Concomitant]
     Dosage: UNK
  13. INEXIUM [Concomitant]
     Dosage: UNK
  14. DIFFU K [Concomitant]
     Dosage: UNK

REACTIONS (5)
  - Vomiting [Recovered/Resolved]
  - Paresis [Recovered/Resolved]
  - Abdominal distension [Recovered/Resolved]
  - Abdominal pain [Recovered/Resolved]
  - Constipation [Unknown]
